FAERS Safety Report 7406090-6 (Version None)
Quarter: 2011Q2

REPORT INFORMATION
  Report Type: 
  Country: None (occurrence: None)
  Receive Date: 20110411
  Receipt Date: 20110330
  Transmission Date: 20111010
  Serious: Yes (Life-Threatening, Hospitalization, Other)
  Sender: FDA-Public Use
  Company Number: US-SANOFI-AVENTIS-2011SA020306

PATIENT
  Age: 32 Year
  Sex: Female

DRUGS (4)
  1. FUROSEMIDE [Suspect]
     Route: 065
  2. VITAMINS NOS [Concomitant]
     Indication: PRENATAL CARE
     Route: 065
  3. AMPICILLIN [Concomitant]
     Indication: URINARY TRACT INFECTION
     Route: 065
  4. ANTACIDS [Concomitant]
     Route: 048

REACTIONS (4)
  - BLOOD CALCIUM INCREASED [None]
  - DRUG INEFFECTIVE [None]
  - DRUG EXPOSURE DURING PREGNANCY [None]
  - HYPERCALCAEMIA [None]
